FAERS Safety Report 7007452-1 (Version None)
Quarter: 2010Q3

REPORT INFORMATION
  Report Type: 
  Country: None (occurrence: None)
  Receive Date: 20100914
  Receipt Date: 20100908
  Transmission Date: 20110219
  Serious: Yes (Life-Threatening, Hospitalization, Disabling, Other)
  Sender: FDA-Public Use
  Company Number: 2010SP046583

PATIENT
  Age: 56 Year
  Sex: Female

DRUGS (2)
  1. PEG-INTRON [Suspect]
     Indication: HEPATITIS C
     Dosage: QOW; SC
     Route: 058
     Dates: start: 20091012, end: 20100319
  2. REBETOL [Suspect]
     Indication: HEPATITIS C
     Dosage: 600 MG; BID; PO
     Route: 048
     Dates: start: 20091012, end: 20100128

REACTIONS (13)
  - CEREBRAL INFARCTION [None]
  - CHILLS [None]
  - COUGH [None]
  - DYSPNOEA [None]
  - LEUKOCYTOSIS [None]
  - LUNG CONSOLIDATION [None]
  - NEUTROPHILIA [None]
  - PNEUMONIA [None]
  - PYREXIA [None]
  - RAYNAUD'S PHENOMENON [None]
  - RECTAL HAEMORRHAGE [None]
  - RENAL FAILURE [None]
  - THROMBOCYTOPENIA [None]
